FAERS Safety Report 24782763 (Version 2)
Quarter: 2025Q1

REPORT INFORMATION
  Report Type: Report from Study
  Country: JP (occurrence: JP)
  Receive Date: 20241227
  Receipt Date: 20250228
  Transmission Date: 20250409
  Serious: Yes (Other)
  Sender: EISAI
  Company Number: JP-Eisai-202412595_LEQ_P_1

PATIENT
  Age: 80 Year
  Sex: Female
  Weight: 51.4 kg

DRUGS (3)
  1. LEQEMBI [Suspect]
     Active Substance: LECANEMAB-IRMB
     Indication: Cognitive disorder
     Route: 042
     Dates: start: 20240510, end: 20240621
  2. LEQEMBI [Suspect]
     Active Substance: LECANEMAB-IRMB
     Indication: Dementia Alzheimer^s type
     Route: 042
     Dates: start: 20240705, end: 20240828
  3. CANDESARTAN [Concomitant]
     Active Substance: CANDESARTAN
     Indication: Hypertension
     Route: 048

REACTIONS (1)
  - Neoplasm malignant [Unknown]

NARRATIVE: CASE EVENT DATE: 20240101
